FAERS Safety Report 8646346 (Version 5)
Quarter: 2013Q3

REPORT INFORMATION
  Report Type: Report from Study
  Country: JP (occurrence: JP)
  Receive Date: 20120702
  Receipt Date: 20130920
  Transmission Date: 20140515
  Serious: Yes (Hospitalization, Other)
  Sender: FDA-Public Use
  Company Number: JP-VERTEX PHARMACEUTICALS INC.-AE-2012-009358

PATIENT
  Age: 65 Year
  Sex: Female

DRUGS (15)
  1. VX-950 (TELAPREVIR) [Suspect]
     Indication: CHRONIC HEPATITIS C
     Dosage: 2250 MG, QD
     Route: 048
     Dates: start: 20120501, end: 20120529
  2. RIBAVIRIN [Suspect]
     Indication: CHRONIC HEPATITIS C
     Dosage: 600 MG, QD
     Route: 048
     Dates: start: 20120501, end: 20120507
  3. RIBAVIRIN [Suspect]
     Dosage: 400 MG, QD
     Route: 048
     Dates: start: 20120508, end: 20120521
  4. RIBAVIRIN [Suspect]
     Dosage: 200 MG, QD
     Route: 048
     Dates: start: 20120522, end: 20120529
  5. PEGINTERFERON ALFA-2B [Suspect]
     Indication: CHRONIC HEPATITIS C
     Dosage: 1.5 ?G/KG, QW
     Route: 058
     Dates: start: 20120501, end: 20120529
  6. ESTRIEL [Concomitant]
     Dosage: 2 MG, QD
     Route: 048
  7. ZETIA [Concomitant]
     Dosage: 10 MG, QD
     Route: 048
  8. NU-LOTAN [Concomitant]
     Dosage: 25 MG, QD
     Route: 048
  9. TAKEPRON [Concomitant]
     Dosage: 15 MG, QD
     Route: 048
  10. LENDORMIN [Concomitant]
     Dosage: 0.25 MG, QD
     Route: 048
  11. MAGMITT [Concomitant]
     Dosage: 1500 MG, QD
     Route: 048
  12. LOXONIN [Concomitant]
     Dosage: 60 MG/ DAY, PRN
     Route: 048
  13. LOXONIN [Concomitant]
     Dosage: 60 MG, QD
     Route: 048
  14. GASMOTIN [Concomitant]
     Dosage: 15 MG, QD
     Route: 048
     Dates: start: 20120605
  15. GASMOTIN [Concomitant]
     Dosage: 15 MG, QD
     Route: 048
     Dates: start: 20120724

REACTIONS (3)
  - Herpes zoster [Recovered/Resolved]
  - Decreased appetite [Recovered/Resolved]
  - Renal impairment [Not Recovered/Not Resolved]
